FAERS Safety Report 15163335 (Version 1)
Quarter: 2018Q3

REPORT INFORMATION
  Report Type: Spontaneous
  Country: AT (occurrence: AT)
  Receive Date: 20180719
  Receipt Date: 20180719
  Transmission Date: 20181010
  Serious: Yes (Other)
  Sender: FDA-Public Use
  Company Number: AT-MERCK KGAA-2052366

PATIENT
  Sex: Female

DRUGS (2)
  1. NOVOTHYRAL [Suspect]
     Active Substance: LEVOTHYROXINE SODIUM\LIOTHYRONINE SODIUM
  2. NOVOTHYROX [Suspect]
     Active Substance: LEVOTHYROXINE SODIUM
     Indication: PRODUCT USED FOR UNKNOWN INDICATION
     Route: 048

REACTIONS (6)
  - Alopecia [None]
  - Decreased activity [None]
  - Hyperhidrosis [None]
  - Hyperthyroidism [None]
  - Madarosis [None]
  - Heart rate increased [None]
